FAERS Safety Report 17907598 (Version 1)
Quarter: 2020Q2

REPORT INFORMATION
  Report Type: Other
  Country: DE (occurrence: DE)
  Receive Date: 20200617
  Receipt Date: 20200617
  Transmission Date: 20200714
  Serious: Yes (Hospitalization, Congenital Anomaly, Other)
  Sender: FDA-Public Use
  Company Number: DE-APOTEX-2020AP012356

PATIENT
  Sex: Male

DRUGS (1)
  1. PAROXETINE. [Suspect]
     Active Substance: PAROXETINE
     Indication: DEPRESSION
     Dosage: 10 MG, QD (MUTTER) (0..-12. GESTATIONAL WEEK)
     Route: 064

REACTIONS (7)
  - Dermoid cyst [Not Recovered/Not Resolved]
  - Congenital hydronephrosis [Recovered/Resolved]
  - Foetal exposure during pregnancy [Unknown]
  - Congenital megaureter [Recovered/Resolved with Sequelae]
  - Choanal atresia [Unknown]
  - Ureteric stenosis [Recovered/Resolved with Sequelae]
  - Congenital inguinal hernia [Recovered/Resolved with Sequelae]

NARRATIVE: CASE EVENT DATE: 20170728
